FAERS Safety Report 18753934 (Version 2)
Quarter: 2021Q4

REPORT INFORMATION
  Report Type: Spontaneous
  Country: US (occurrence: US)
  Receive Date: 20210119
  Receipt Date: 20211220
  Transmission Date: 20220303
  Serious: Yes (Death, Hospitalization, Other)
  Sender: FDA-Public Use
  Company Number: US-AUROBINDO-AUR-APL-2021-001972

PATIENT
  Age: 62 Year
  Sex: Female

DRUGS (1)
  1. METFORMIN [Suspect]
     Active Substance: METFORMIN HYDROCHLORIDE
     Indication: Product used for unknown indication
     Dosage: 270 GRAM
     Route: 065

REACTIONS (7)
  - Cardiac arrest [Fatal]
  - Overdose [Fatal]
  - Lactic acidosis [Unknown]
  - Hyperglycaemia [Unknown]
  - Vomiting [Unknown]
  - Hypotension [Unknown]
  - Metabolic acidosis [Unknown]
